FAERS Safety Report 17925412 (Version 1)
Quarter: 2020Q2

REPORT INFORMATION
  Report Type: Report from Study
  Country: CA (occurrence: CA)
  Receive Date: 20200623
  Receipt Date: 20200623
  Transmission Date: 20200714
  Serious: No
  Sender: FDA-Public Use
  Company Number: CA-BEH-2020118963

PATIENT
  Age: 90 Year
  Sex: Female

DRUGS (1)
  1. HIZENTRA [Suspect]
     Active Substance: HUMAN IMMUNOGLOBULIN G
     Indication: PRIMARY IMMUNODEFICIENCY SYNDROME
     Dosage: 5 GRAM, QW
     Route: 058
     Dates: start: 20180219

REACTIONS (5)
  - Incorrect dose administered [Unknown]
  - Device physical property issue [Unknown]
  - No adverse event [Unknown]
  - Device issue [Unknown]
  - Syringe issue [Unknown]

NARRATIVE: CASE EVENT DATE: 202006
